FAERS Safety Report 22353296 (Version 5)
Quarter: 2024Q1

REPORT INFORMATION
  Report Type: Report from Study
  Country: US (occurrence: US)
  Receive Date: 20230523
  Receipt Date: 20240319
  Transmission Date: 20240409
  Serious: Yes (Other)
  Sender: FDA-Public Use
  Company Number: US-002147023-NVSC2023US114677

PATIENT
  Age: 48 Year
  Sex: Female

DRUGS (2)
  1. KESIMPTA [Suspect]
     Active Substance: OFATUMUMAB
     Indication: Relapsing-remitting multiple sclerosis
     Dosage: 20 MG, QMO
     Route: 058
     Dates: start: 20230207
  2. KESIMPTA [Suspect]
     Active Substance: OFATUMUMAB
     Dosage: 20 MG, QMO
     Route: 058
     Dates: start: 20231025

REACTIONS (12)
  - Pancreatitis [Recovering/Resolving]
  - Urinary tract infection [Unknown]
  - Nasopharyngitis [Unknown]
  - Head discomfort [Unknown]
  - Cough [Unknown]
  - Oropharyngeal pain [Unknown]
  - Nasal congestion [Unknown]
  - Muscular weakness [Recovering/Resolving]
  - Bladder dysfunction [Recovering/Resolving]
  - Urinary incontinence [Unknown]
  - Tendon pain [Unknown]
  - Myalgia [Unknown]

NARRATIVE: CASE EVENT DATE: 20230301
